FAERS Safety Report 8233022-3 (Version None)
Quarter: 2012Q1

REPORT INFORMATION
  Report Type: 
  Country: None (occurrence: None)
  Receive Date: 20120326
  Receipt Date: 20120315
  Transmission Date: 20120608
  Serious: Yes (Hospitalization)
  Sender: FDA-Public Use
  Company Number: ES-BIOGENIDEC-2012BI010003

PATIENT
  Age: 48 Year
  Sex: Male

DRUGS (4)
  1. UNSPECIFIED MEDICATION [Concomitant]
     Dates: start: 20061201
  2. UNSPECIFIED MEDICATION [Concomitant]
     Dates: start: 20070701
  3. WARFARIN SODIUM [Concomitant]
     Dates: start: 20050124
  4. TYSABRI [Suspect]
     Indication: MULTIPLE SCLEROSIS
     Route: 042
     Dates: start: 20100101

REACTIONS (1)
  - DEEP VEIN THROMBOSIS [None]
